FAERS Safety Report 4779577-2 (Version None)
Quarter: 2005Q3

REPORT INFORMATION
  Report Type: 
  Country: None (occurrence: None)
  Receive Date: 20050927
  Receipt Date: 20050915
  Transmission Date: 20060218
  Serious: Yes (Death)
  Sender: FDA-Public Use
  Company Number: US-JNJFOC-20050903890

PATIENT
  Sex: Male
  Weight: 76.2 kg

DRUGS (13)
  1. REMICADE [Suspect]
     Indication: RHEUMATOID ARTHRITIS
     Route: 042
  2. OXYCONTIN [Concomitant]
     Dosage: 20 MG IN AM/ 10 MG IN PM
  3. LENOXIN [Concomitant]
  4. LASIX [Concomitant]
  5. METHOTREXATE [Concomitant]
  6. FOLIC ACID [Concomitant]
  7. ASPIRIN [Concomitant]
  8. PREDNISONE [Concomitant]
  9. FORTEO [Concomitant]
  10. FLOMOX [Concomitant]
  11. ATIVAN [Concomitant]
     Dosage: 0.5 MG 1-2 TABS EVERY 4
  12. DURAGESIC-100 [Concomitant]
  13. MORPHINE [Concomitant]
     Dosage: 1CC PRN

REACTIONS (2)
  - CARDIAC FAILURE CONGESTIVE [None]
  - MULTI-ORGAN FAILURE [None]
